FAERS Safety Report 10064213 (Version 1)
Quarter: 2014Q2

REPORT INFORMATION
  Report Type: Spontaneous
  Country: NL (occurrence: NL)
  Receive Date: 20140408
  Receipt Date: 20140408
  Transmission Date: 20141212
  Serious: Yes (Hospitalization)
  Sender: FDA-Public Use
  Company Number: NL-IPSEN BIOPHARMACEUTICALS, INC.-2014-1636

PATIENT
  Age: 80 Year
  Sex: Female

DRUGS (3)
  1. SOMATULINE AUTOSOLUTION 90MG [Suspect]
     Indication: PITUITARY TUMOUR
     Dosage: 90 MG
     Route: 058
     Dates: start: 20130402
  2. SOMATULINE AUTOSOLUTION 90MG [Suspect]
     Indication: ACROMEGALY
  3. SOMATULINE AUTOSOLUTION 90MG [Suspect]
     Indication: OFF LABEL USE

REACTIONS (2)
  - Inflammation [Unknown]
  - Pain in extremity [Unknown]
